FAERS Safety Report 4503588-5 (Version None)
Quarter: 2004Q4

REPORT INFORMATION
  Report Type: 
  Country: None (occurrence: None)
  Receive Date: 20041112
  Receipt Date: 20041028
  Transmission Date: 20050328
  Serious: Yes (Hospitalization)
  Sender: FDA-Public Use
  Company Number: 2004-0007537

PATIENT
  Age: 27 Year
  Sex: Female
  Weight: 60 kg

DRUGS (7)
  1. VIREAD (TENOFOVIR DISOPROXIL FUMARATE)  (300 [Suspect]
     Indication: HIV INFECTION
     Dosage: 300 MG, 1 IN 1 D, ORAL
     Route: 048
     Dates: start: 20040916, end: 20040918
  2. KALETRA [Suspect]
     Indication: HIV INFECTION
     Dosage: ORAL
     Route: 048
     Dates: start: 20040916, end: 20040918
  3. ATAZANAVIR (ATAZANAVIR) [Suspect]
     Indication: HIV INFECTION
     Dosage: ORAL
     Route: 048
     Dates: start: 20040916, end: 20040918
  4. LOXEN (NICARDIPINE HYDROCHLORIDE) [Concomitant]
  5. AMOXICILLIN TRIHYDRATE [Concomitant]
  6. CELESTONE [Concomitant]
  7. ACETAMINOPHEN [Concomitant]

REACTIONS (6)
  - ALANINE AMINOTRANSFERASE INCREASED [None]
  - ASPARTATE AMINOTRANSFERASE INCREASED [None]
  - CAESAREAN SECTION [None]
  - DRUG EXPOSURE DURING PREGNANCY [None]
  - MITOCHONDRIAL TOXICITY [None]
  - VOMITING [None]
